FAERS Safety Report 12178971 (Version 2)
Quarter: 2016Q2

REPORT INFORMATION
  Report Type: Spontaneous
  Country: US (occurrence: US)
  Receive Date: 20160314
  Receipt Date: 20160607
  Transmission Date: 20160815
  Serious: No
  Sender: FDA-Public Use
  Company Number: US-SA-2016SA032915

PATIENT
  Age: 57 Year
  Sex: Male

DRUGS (2)
  1. SOLOSTAR [Concomitant]
     Active Substance: DEVICE
  2. TOUJEO [Suspect]
     Active Substance: INSULIN GLARGINE
     Indication: TYPE 2 DIABETES MELLITUS
     Dosage: DOSE:40 UNIT(S)
     Route: 065
     Dates: start: 20160102

REACTIONS (6)
  - Pallor [Unknown]
  - Tongue disorder [Unknown]
  - Hypoaesthesia oral [Unknown]
  - Therapy change [Unknown]
  - Dizziness [Unknown]
  - Diarrhoea [Unknown]
